FAERS Safety Report 9696679 (Version 2)
Quarter: 2013Q4

REPORT INFORMATION
  Report Type: Spontaneous
  Country: US (occurrence: US)
  Receive Date: 20131119
  Receipt Date: 20131219
  Transmission Date: 20140711
  Serious: Yes (Hospitalization, Other)
  Sender: FDA-Public Use
  Company Number: US-UCBSA-103458

PATIENT
  Age: 58 Year
  Sex: Male
  Weight: 79.54 kg

DRUGS (3)
  1. CIMZIA [Suspect]
     Indication: CROHN^S DISEASE
     Dates: start: 20120801
  2. LIPITOR [Concomitant]
     Indication: BLOOD CHOLESTEROL INCREASED
     Dosage: TAKING FOR 4 YEARS
     Route: 048
  3. MERCAPTOPURINE [Concomitant]
     Indication: CROHN^S DISEASE
     Dosage: TAKING FOR 4 YEARS
     Route: 048

REACTIONS (2)
  - Crohn^s disease [Recovered/Resolved]
  - Clostridium difficile infection [Recovered/Resolved]
